FAERS Safety Report 18366964 (Version 1)
Quarter: 2020Q4

REPORT INFORMATION
  Report Type: Spontaneous
  Country: US (occurrence: US)
  Receive Date: 20201009
  Receipt Date: 20201009
  Transmission Date: 20210114
  Serious: Yes (Other)
  Sender: FDA-Public Use
  Company Number: 1626962-2019-00002

PATIENT

DRUGS (1)
  1. CLEARLIFE NASAL SPRAY [Suspect]
     Active Substance: HOMEOPATHICS
     Route: 045
     Dates: start: 20190219, end: 20190224

REACTIONS (1)
  - Blood pressure measurement [Recovered/Resolved]

NARRATIVE: CASE EVENT DATE: 20190223
